FAERS Safety Report 8052759-2 (Version None)
Quarter: 2012Q1

REPORT INFORMATION
  Report Type: 
  Country: None (occurrence: None)
  Receive Date: 20120117
  Receipt Date: 20120117
  Transmission Date: 20120608
  Serious: Yes (Hospitalization)
  Sender: FDA-Public Use
  Company Number: None

PATIENT
  Age: 70 Year
  Sex: Male
  Weight: 81.7 kg

DRUGS (1)
  1. CLINDAMYCIN [Suspect]
     Dosage: 300 MG TID PO
     Route: 048
     Dates: start: 20110815, end: 20110821

REACTIONS (2)
  - PRURITUS [None]
  - RASH [None]
